FAERS Safety Report 12629973 (Version 1)
Quarter: 2016Q3

REPORT INFORMATION
  Report Type: Spontaneous
  Country: US (occurrence: US)
  Receive Date: 20160808
  Receipt Date: 20160808
  Transmission Date: 20161109
  Serious: Yes (Other)
  Sender: FDA-Public Use
  Company Number: US-SA-2016SA138653

PATIENT
  Age: 66 Year
  Sex: Male

DRUGS (2)
  1. SOLOSTAR [Concomitant]
     Active Substance: DEVICE
     Indication: TYPE 2 DIABETES MELLITUS
  2. LANTUS SOLOSTAR [Suspect]
     Active Substance: INSULIN GLARGINE
     Indication: TYPE 2 DIABETES MELLITUS
     Dosage: DOSE: SATRTED AT 6 UNITS, NOW DOSE IS 36 UNITS
     Route: 065

REACTIONS (6)
  - Discomfort [Unknown]
  - Peroneal nerve palsy [Unknown]
  - Blood glucose decreased [Unknown]
  - Back disorder [Unknown]
  - Asthenia [Unknown]
  - Hypoaesthesia [Unknown]
